FAERS Safety Report 7365363-6 (Version None)
Quarter: 2011Q1

REPORT INFORMATION
  Report Type: 
  Country: None (occurrence: None)
  Receive Date: 20110322
  Receipt Date: 20110316
  Transmission Date: 20110831
  Serious: No
  Sender: FDA-Public Use
  Company Number: US-BIOGENIDEC-2011BI010121

PATIENT
  Age: 29 Year
  Sex: Female

DRUGS (1)
  1. TYSABRI [Suspect]
     Indication: MULTIPLE SCLEROSIS
     Route: 042
     Dates: start: 20110315

REACTIONS (5)
  - DRUG INEFFECTIVE [None]
  - STRESS [None]
  - FATIGUE [None]
  - SOMNOLENCE [None]
  - MEMORY IMPAIRMENT [None]
